FAERS Safety Report 20590357 (Version 1)
Quarter: 2022Q1

REPORT INFORMATION
  Report Type: Spontaneous
  Country: IN (occurrence: None)
  Receive Date: 20220314
  Receipt Date: 20220314
  Transmission Date: 20220424
  Serious: Yes (Hospitalization, Other)
  Sender: FDA-Public Use
  Company Number: IN-Fresenius Kabi-FK202202861

PATIENT
  Age: 61 Year
  Sex: Male

DRUGS (4)
  1. CISPLATIN [Suspect]
     Active Substance: CISPLATIN
     Indication: Hypopharyngeal cancer
     Dosage: NEOADJUVANT THERAPY
  2. CISPLATIN [Suspect]
     Active Substance: CISPLATIN
     Dosage: FIRST CHEMOTHERAPY CYCLE
     Dates: start: 2019
  3. FLUOROURACIL [Suspect]
     Active Substance: FLUOROURACIL
     Indication: Hypopharyngeal cancer
     Dosage: NEOADJUVANT THERAPY
  4. FLUOROURACIL [Suspect]
     Active Substance: FLUOROURACIL
     Dosage: FIRST CHEMOTHERAPY CYCLE
     Dates: start: 2019

REACTIONS (1)
  - Renal salt-wasting syndrome [Recovered/Resolved]
